FAERS Safety Report 12927802 (Version 1)
Quarter: 2016Q4

REPORT INFORMATION
  Report Type: Other
  Country: US (occurrence: US)
  Receive Date: 20161109
  Receipt Date: 20161109
  Transmission Date: 20170207
  Serious: Yes (Hospitalization)
  Sender: FDA-Public Use
  Company Number: US-JUBILANT GENERICS LIMITED-1059395

PATIENT
  Age: 32 Year
  Sex: Female

DRUGS (3)
  1. CAPREOMYCIN [Suspect]
     Active Substance: CAPREOMYCIN
  2. ETHAMBUTOL [Concomitant]
     Active Substance: ETHAMBUTOL HYDROCHLORIDE
  3. LEVOFLOXACIN. [Suspect]
     Active Substance: LEVOFLOXACIN

REACTIONS (3)
  - Drug-induced liver injury [Recovered/Resolved]
  - Hepatitis B [Recovered/Resolved]
  - Inhibitory drug interaction [Recovered/Resolved]

NARRATIVE: CASE EVENT DATE: 20161024
